FAERS Safety Report 7060782-X (Version None)
Quarter: 2010Q4

REPORT INFORMATION
  Report Type: 
  Country: None (occurrence: None)
  Receive Date: 20101025
  Receipt Date: 20101021
  Transmission Date: 20110411
  Serious: Yes (Life-Threatening)
  Sender: FDA-Public Use
  Company Number: JP-ASTRAZENECA-2010SE50005

PATIENT
  Age: 83 Year
  Sex: Male

DRUGS (6)
  1. ZOLADEX [Suspect]
     Indication: PROSTATE CANCER
     Route: 058
     Dates: start: 20100914, end: 20100914
  2. CASODEX [Suspect]
     Indication: PROSTATE CANCER
     Route: 048
     Dates: start: 20100815, end: 20101005
  3. TAKEPRON [Concomitant]
     Dosage: DOSE UNKNOWN
     Route: 065
  4. MAGMITT [Concomitant]
     Dosage: DOSE UNKNOWN
     Route: 048
  5. HYPEN [Concomitant]
     Dosage: DOSE UNKNOWN
     Route: 048
  6. DUROTEP [Concomitant]
     Dosage: DOSE UNKNOWN
     Route: 062

REACTIONS (1)
  - INTERSTITIAL LUNG DISEASE [None]
